FAERS Safety Report 13172578 (Version 1)
Quarter: 2017Q1

REPORT INFORMATION
  Report Type: Report from Study
  Country: DE (occurrence: AR)
  Receive Date: 20170131
  Receipt Date: 20170131
  Transmission Date: 20170428
  Serious: Yes (Death, Hospitalization)
  Sender: FDA-Public Use
  Company Number: DE-ACTELION-A-NJ2016-134190

PATIENT
  Age: 47 Year
  Sex: Female

DRUGS (2)
  1. SILDENAFIL. [Concomitant]
     Active Substance: SILDENAFIL
  2. VENTAVIS [Suspect]
     Active Substance: ILOPROST
     Indication: PULMONARY HYPERTENSION
     Dosage: 2.5 MCG, UNK
     Route: 055
     Dates: start: 20120601, end: 20151023

REACTIONS (2)
  - Pulmonary hypertension [Fatal]
  - Cardiac arrest [Fatal]
